FAERS Safety Report 19720855 (Version 1)
Quarter: 2021Q3

REPORT INFORMATION
  Report Type: Spontaneous
  Country: US (occurrence: US)
  Receive Date: 20210818
  Receipt Date: 20210818
  Transmission Date: 20211014
  Serious: Yes (Hospitalization)
  Sender: FDA-Public Use
  Company Number: None

PATIENT
  Sex: Female

DRUGS (1)
  1. AMBRISENTAN 10 MG TAB [Suspect]
     Active Substance: AMBRISENTAN
     Indication: PULMONARY HYPERTENSION
     Dosage: RX: TAKE 1 TABLET (10MG TOTAL) BY MOUTH DAILY. START AFTER ONE MONTH 5MG TABLETS
     Route: 048

REACTIONS (1)
  - Pericardial effusion [None]
